FAERS Safety Report 14751125 (Version 2)
Quarter: 2018Q2

REPORT INFORMATION
  Report Type: Spontaneous
  Country: JP (occurrence: JP)
  Receive Date: 20180412
  Receipt Date: 20180417
  Transmission Date: 20180711
  Serious: Yes (Hospitalization, Other)
  Sender: FDA-Public Use
  Company Number: JP-PFIZER INC-2018141916

PATIENT
  Age: 69 Year
  Sex: Male

DRUGS (4)
  1. PIPERACILIN/TAZOBACTAM [Concomitant]
     Active Substance: PIPERACILLIN SODIUM\TAZOBACTAM SODIUM
     Dosage: UNK
  2. RAMUCIRUMAB [Concomitant]
     Active Substance: RAMUCIRUMAB
     Indication: NON-SMALL CELL LUNG CANCER
     Dosage: UNK UNK, CYCLIC, (EIGHT COURSES OF CHEMOTHERAPY)
  3. FILGRASTIM [Concomitant]
     Active Substance: FILGRASTIM
     Dosage: UNK
  4. DOCETAXEL. [Suspect]
     Active Substance: DOCETAXEL
     Indication: NON-SMALL CELL LUNG CANCER
     Dosage: UNK UNK, CYCLIC, (EIGHT COURSES OF CHEMOTHERAPY)

REACTIONS (3)
  - Febrile neutropenia [Recovering/Resolving]
  - Onycholysis [Unknown]
  - Paronychia [Recovering/Resolving]
